FAERS Safety Report 16404543 (Version 2)
Quarter: 2019Q2

REPORT INFORMATION
  Report Type: Spontaneous
  Country: US (occurrence: US)
  Receive Date: 20190607
  Receipt Date: 20190618
  Transmission Date: 20190711
  Serious: No
  Sender: FDA-Public Use
  Company Number: US-PFIZER INC-2019244218

PATIENT
  Age: 67 Year
  Sex: Female

DRUGS (2)
  1. LORBRENA [Suspect]
     Active Substance: LORLATINIB
     Dosage: 75 MG, DAILY (25MG X 3 DAILY)
  2. LORBRENA [Suspect]
     Active Substance: LORLATINIB
     Indication: LUNG NEOPLASM MALIGNANT
     Dosage: 75 MG, DAILY
     Route: 048

REACTIONS (4)
  - Inflammation [Unknown]
  - Speech disorder [Unknown]
  - Cough [Unknown]
  - Confusional state [Unknown]
